FAERS Safety Report 5245698-3 (Version None)
Quarter: 2007Q1

REPORT INFORMATION
  Report Type: 
  Country: None (occurrence: None)
  Receive Date: 20070223
  Receipt Date: 20070213
  Transmission Date: 20070707
  Serious: Yes (Hospitalization, Other)
  Sender: FDA-Public Use
  Company Number: US-PFIZER INC-2007012369

PATIENT
  Sex: Female
  Weight: 122.5 kg

DRUGS (2)
  1. LYRICA [Suspect]
     Indication: DIABETIC NEUROPATHY
  2. AMITRIPTYLINE HCL [Concomitant]

REACTIONS (8)
  - DIPLOPIA [None]
  - DRUG INEFFECTIVE [None]
  - FATIGUE [None]
  - FEELING ABNORMAL [None]
  - HEADACHE [None]
  - OVERDOSE [None]
  - SOMNOLENCE [None]
  - VISION BLURRED [None]
